FAERS Safety Report 5994017-3 (Version None)
Quarter: 2008Q4

REPORT INFORMATION
  Report Type: 
  Country: None (occurrence: None)
  Receive Date: 20081212
  Receipt Date: 20080908
  Transmission Date: 20090506
  Serious: No
  Sender: FDA-Public Use
  Company Number: US-ABBOTT-08P-163-0470656-00

PATIENT
  Sex: Male
  Weight: 86.26 kg

DRUGS (14)
  1. HUMIRA [Suspect]
     Indication: CROHN'S DISEASE
     Route: 058
     Dates: start: 20080705
  2. HUMIRA [Suspect]
     Route: 058
  3. HUMIRA [Suspect]
  4. HUMIRA [Suspect]
  5. HUMIRA [Suspect]
  6. PREDNISONE TAB [Concomitant]
     Indication: HERPES ZOSTER
     Dosage: TAPERING OFF
     Route: 048
     Dates: start: 20080810
  7. OMEPRAZOLE [Concomitant]
     Indication: DIARRHOEA
     Dosage: QAM
     Route: 048
     Dates: start: 20080810
  8. LOMOTIL [Concomitant]
     Indication: DIARRHOEA
     Route: 048
  9. LOMOTIL [Concomitant]
     Indication: CROHN'S DISEASE
  10. TOLAZOL [Concomitant]
     Indication: CROHN'S DISEASE
  11. HYOMAX [Concomitant]
     Indication: GASTROINTESTINAL MOTILITY DISORDER
     Dosage: SEVERAL TIMES
  12. BALSALAZIDE DISODIUM [Concomitant]
     Indication: CROHN'S DISEASE
  13. RIFAXIMIN [Concomitant]
     Indication: DRUG USE FOR UNKNOWN INDICATION
  14. LACTOBACILLUS ACIDOPHILUS [Concomitant]
     Indication: DRUG USE FOR UNKNOWN INDICATION

REACTIONS (13)
  - ARTHRALGIA [None]
  - BACK PAIN [None]
  - CROHN'S DISEASE [None]
  - EAR PAIN [None]
  - HERPES ZOSTER [None]
  - MUSCULOSKELETAL PAIN [None]
  - NASOPHARYNGITIS [None]
  - NECK PAIN [None]
  - PAIN [None]
  - PRURITUS [None]
  - STRESS [None]
  - SUICIDAL IDEATION [None]
  - VIRAL INFECTION [None]
